FAERS Safety Report 10500723 (Version 4)
Quarter: 2015Q2

REPORT INFORMATION
  Report Type: Report from Study
  Country: NL (occurrence: NL)
  Receive Date: 20141007
  Receipt Date: 20150609
  Transmission Date: 20150821
  Serious: Yes (Life-Threatening, Other)
  Sender: FDA-Public Use
  Company Number: NL-ROCHE-1469006

PATIENT
  Age: 54 Year
  Sex: Female

DRUGS (7)
  1. TENIPOSIDE. [Suspect]
     Active Substance: TENIPOSIDE
     Indication: CENTRAL NERVOUS SYSTEM LYMPHOMA
     Dosage: DATE LAST DOSE PRIOR TO SAE: 06/SEP/2014
     Route: 065
     Dates: start: 20140905
  2. RITUXIMAB [Suspect]
     Active Substance: RITUXIMAB
     Dosage: DATE OF LAST DOSE PRIOR TO SAE 17/SEP/2014
     Route: 042
  3. PREDNISOLONE. [Suspect]
     Active Substance: PREDNISOLONE
     Indication: CENTRAL NERVOUS SYSTEM LYMPHOMA
     Dosage: DATE LAST DOSE PRIOR TO SAE: 08/SEP/2014
     Route: 065
     Dates: start: 20140904
  4. METHOTREXATE [Suspect]
     Active Substance: METHOTREXATE
     Dosage: DATE OF LAST DOSE PRIOR TO SAE: 18/SEP/2014
     Route: 065
  5. METHOTREXATE [Suspect]
     Active Substance: METHOTREXATE
     Indication: CENTRAL NERVOUS SYSTEM LYMPHOMA
     Dosage: DATE LAST DOSE PRIOR TO SAE: 04/SEP/2014
     Route: 065
     Dates: start: 20140904
  6. BICNU [Suspect]
     Active Substance: CARMUSTINE
     Indication: CENTRAL NERVOUS SYSTEM LYMPHOMA
     Dosage: DATE LAST DOSE PRIOR TO SAE: 07/SEP/2014
     Route: 065
     Dates: start: 20140907
  7. RITUXIMAB [Suspect]
     Active Substance: RITUXIMAB
     Indication: CENTRAL NERVOUS SYSTEM LYMPHOMA
     Dosage: DATE LAST DOSE PRIOR TO SAE: 10/SEP/2014
     Route: 042
     Dates: start: 20140903

REACTIONS (2)
  - Pulmonary embolism [Recovered/Resolved]
  - Meningitis [Not Recovered/Not Resolved]

NARRATIVE: CASE EVENT DATE: 20140915
